FAERS Safety Report 25037593 (Version 1)
Quarter: 2025Q1

REPORT INFORMATION
  Report Type: Spontaneous
  Country: US (occurrence: None)
  Receive Date: 20250304
  Receipt Date: 20250304
  Transmission Date: 20250409
  Serious: Yes (Disabling)
  Sender: FDA-CTU
  Company Number: None

PATIENT
  Age: 15 Year
  Sex: Female
  Weight: 67.5 kg

DRUGS (9)
  1. MONTELUKAST SODIUM [Suspect]
     Active Substance: MONTELUKAST SODIUM
     Indication: Hypersensitivity
     Dosage: AT BEDTIME ORAL
     Route: 048
     Dates: start: 20230822, end: 20240102
  2. MONTELUKAST SODIUM [Suspect]
     Active Substance: MONTELUKAST SODIUM
     Indication: Ear pain
  3. SERTRALINE [Concomitant]
     Active Substance: SERTRALINE HYDROCHLORIDE
  4. FLUTICASONE PROPIONATE [Concomitant]
     Active Substance: FLUTICASONE PROPIONATE
  5. LEVOCETIRIZINE [Concomitant]
     Active Substance: LEVOCETIRIZINE
  6. VENTOLIN HFA [Concomitant]
     Active Substance: ALBUTEROL SULFATE
  7. MAGNESIUM [Concomitant]
     Active Substance: MAGNESIUM
  8. B2 Riboflavin [Concomitant]
  9. Flinstones chewable [Concomitant]

REACTIONS (12)
  - Hallucination, auditory [None]
  - Hallucination, visual [None]
  - Mood altered [None]
  - Emotional poverty [None]
  - Anger [None]
  - Depressed mood [None]
  - Poor quality sleep [None]
  - Confusional state [None]
  - Disturbance in attention [None]
  - Aggression [None]
  - Frustration tolerance decreased [None]
  - Conversion disorder [None]

NARRATIVE: CASE EVENT DATE: 20240103
